FAERS Safety Report 5060177-4 (Version None)
Quarter: 2006Q3

REPORT INFORMATION
  Report Type: 
  Country: None (occurrence: None)
  Receive Date: 20060719
  Receipt Date: 20060714
  Transmission Date: 20061208
  Serious: Yes (Hospitalization)
  Sender: FDA-Public Use
  Company Number: 2006P1000105

PATIENT
  Age: 54 Year
  Sex: Male
  Weight: 60 kg

DRUGS (8)
  1. RETEPLASE (RETEPLASE) [Suspect]
     Indication: ACUTE MYOCARDIAL INFARCTION
     Dosage: IV
     Route: 042
     Dates: start: 20051112
  2. REOPRO [Suspect]
     Indication: ACUTE MYOCARDIAL INFARCTION
     Dosage: IV
     Route: 042
     Dates: start: 20051112
  3. ACEBUTOLOL [Concomitant]
  4. ASPIRIN [Concomitant]
  5. TRANDOLAPRIL [Concomitant]
  6. CLOPIDOGREL [Concomitant]
  7. CLOPIDOGREL [Concomitant]
  8. SIMVASTATIN [Concomitant]

REACTIONS (2)
  - CORONARY ARTERY STENOSIS [None]
  - PLATELET COUNT DECREASED [None]
